FAERS Safety Report 7821529-X (Version None)
Quarter: 2011Q4

REPORT INFORMATION
  Report Type: 
  Country: None (occurrence: None)
  Receive Date: 20111018
  Receipt Date: 20111012
  Transmission Date: 20120403
  Serious: Yes (Hospitalization, Other)
  Sender: FDA-Public Use
  Company Number: US-PFIZER INC-2011244415

PATIENT
  Sex: Male
  Weight: 121 kg

DRUGS (3)
  1. ZOCOR [Concomitant]
     Dosage: UNK
  2. KLONOPIN [Concomitant]
     Dosage: UNK
  3. GEODON [Suspect]
     Indication: MENTAL DISORDER
     Dosage: 80MG ORAL CAPSULE TWO TIMES A DAY (ONCE IN MORNING AND ONCE IN EVENING) AND 20MG CAPSULE ONCE IN AFT
     Route: 048

REACTIONS (9)
  - TOBACCO USER [None]
  - WEIGHT INCREASED [None]
  - DYSPNOEA [None]
  - ASTHMA [None]
  - HYPERPHAGIA [None]
  - CHOKING [None]
  - WEIGHT DECREASED [None]
  - OBESITY [None]
  - LUNG DISORDER [None]
